FAERS Safety Report 12094811 (Version 3)
Quarter: 2016Q2

REPORT INFORMATION
  Report Type: Report from Study
  Country: CA (occurrence: CA)
  Receive Date: 20160219
  Receipt Date: 20160617
  Transmission Date: 20160815
  Serious: Yes (Hospitalization, Other)
  Sender: FDA-Public Use
  Company Number: CA-TAKEDA-2016TUS000208

PATIENT
  Age: 59 Year
  Sex: Male
  Weight: 72 kg

DRUGS (9)
  1. SALOFALK [Concomitant]
     Active Substance: MESALAMINE
     Dosage: UNK
  2. TIAZAC XC [Concomitant]
     Active Substance: DILTIAZEM HYDROCHLORIDE
     Dosage: 180 MG, UNK
  3. OLMETEC PLUS [Concomitant]
     Active Substance: HYDROCHLOROTHIAZIDE\OLMESARTAN MEDOXOMIL
     Dosage: UNK
  4. DILTIAZEM HCL XC [Concomitant]
     Dosage: 180 MG, UNK
  5. DIPHENHYDRAMINE. [Concomitant]
     Active Substance: DIPHENHYDRAMINE
     Dosage: 50 MG, UNK
     Route: 048
  6. VEDOLIZUMAB [Suspect]
     Active Substance: VEDOLIZUMAB
     Indication: COLITIS ULCERATIVE
     Dosage: 300 MG, UNK
     Route: 042
     Dates: start: 20151223
  7. PREDNISONE. [Suspect]
     Active Substance: PREDNISONE
     Indication: PRODUCT USED FOR UNKNOWN INDICATION
     Dosage: UNK
     Route: 065
  8. MEZAVANT [Concomitant]
     Active Substance: MESALAMINE
     Dosage: UNK UNK, QD
  9. ACETAMINOPHEN. [Concomitant]
     Active Substance: ACETAMINOPHEN
     Dosage: 650 MG, UNK
     Route: 048

REACTIONS (18)
  - Rash pruritic [Unknown]
  - Asthenia [Recovering/Resolving]
  - Headache [Unknown]
  - Cardiac disorder [Unknown]
  - Neck pain [Unknown]
  - Pain [Unknown]
  - Neuralgia [Unknown]
  - Peripheral swelling [Unknown]
  - Abdominal distension [Unknown]
  - Joint swelling [Unknown]
  - Frequent bowel movements [Unknown]
  - Bone pain [Unknown]
  - Gait disturbance [Unknown]
  - Rash erythematous [Unknown]
  - Infection [Unknown]
  - Pruritus [Unknown]
  - Abdominal pain [Unknown]
  - Fatigue [Unknown]

NARRATIVE: CASE EVENT DATE: 201512
